FAERS Safety Report 15668993 (Version 1)
Quarter: 2018Q4

REPORT INFORMATION
  Report Type: Spontaneous
  Country: US (occurrence: US)
  Receive Date: 20181129
  Receipt Date: 20181129
  Transmission Date: 20190205
  Serious: Yes (Death, Life-Threatening, Hospitalization, Other)
  Sender: FDA-Public Use
  Company Number: US-JNJFOC-20181126319

PATIENT
  Age: 34 Year
  Sex: Male

DRUGS (5)
  1. LOPERAMIDE HYDROCHLORIDE. [Suspect]
     Active Substance: LOPERAMIDE HYDROCHLORIDE
     Indication: DRUG USE DISORDER
     Dosage: DOSE ADMINISTERED BEFORE DEATH
     Route: 048
  2. LOPERAMIDE HYDROCHLORIDE. [Suspect]
     Active Substance: LOPERAMIDE HYDROCHLORIDE
     Indication: DRUG USE DISORDER
     Dosage: 72 PILLS IN TOTAL
     Route: 048
  3. GABAPENTIN. [Suspect]
     Active Substance: GABAPENTIN
     Indication: PRODUCT USED FOR UNKNOWN INDICATION
     Route: 065
  4. LOPERAMIDE HYDROCHLORIDE. [Suspect]
     Active Substance: LOPERAMIDE HYDROCHLORIDE
     Indication: DRUG USE DISORDER
     Dosage: ESCALATED UPTO 200 PILLS OF 2 MG
     Route: 048
  5. ETIZOLAM [Suspect]
     Active Substance: ETIZOLAM
     Indication: PRODUCT USED FOR UNKNOWN INDICATION
     Route: 065

REACTIONS (17)
  - Drug abuse [Fatal]
  - Drug withdrawal syndrome [Recovered/Resolved]
  - Rhinorrhoea [Recovered/Resolved]
  - Pulmonary congestion [Fatal]
  - Drug dependence [Fatal]
  - Lacrimation increased [Recovered/Resolved]
  - Atrioventricular block first degree [Unknown]
  - Mydriasis [Recovered/Resolved]
  - Palpitations [Unknown]
  - Toxicity to various agents [Fatal]
  - Depressed level of consciousness [Recovered/Resolved]
  - Yawning [Recovered/Resolved]
  - Overdose [Fatal]
  - Skin burning sensation [Recovered/Resolved]
  - Diarrhoea [Recovered/Resolved]
  - Abdominal pain [Recovered/Resolved]
  - Irritability [Recovered/Resolved]
